FAERS Safety Report 6342777-4 (Version None)
Quarter: 2009Q3

REPORT INFORMATION
  Report Type: 
  Country: None (occurrence: None)
  Receive Date: 20090908
  Receipt Date: 20090504
  Transmission Date: 20100115
  Serious: No
  Sender: FDA-Public Use
  Company Number: VN-ROCHE-639934

PATIENT
  Age: 22 Year
  Sex: Female
  Weight: 47.5 kg

DRUGS (3)
  1. OSELTAMIVIR [Suspect]
     Indication: AVIAN INFLUENZA
     Route: 050
  2. ANTIBIOTIC NOS [Concomitant]
     Route: 042
  3. HYDROCORTISONE [Concomitant]
     Route: 042

REACTIONS (2)
  - NO ADVERSE EVENT [None]
  - PREGNANCY [None]
